FAERS Safety Report 9121232 (Version 1)
Quarter: 2013Q1

REPORT INFORMATION
  Report Type: Report from Study
  Country: US (occurrence: US)
  Receive Date: 20130225
  Receipt Date: 20130225
  Transmission Date: 20140127
  Serious: Yes (Other)
  Sender: FDA-Public Use
  Company Number: US-ROCHE-1190979

PATIENT
  Sex: Male
  Weight: 133.93 kg

DRUGS (7)
  1. MYCOPHENOLATE MOFETIL [Suspect]
     Indication: SJOGREN^S SYNDROME
     Route: 065
  2. MYCOPHENOLATE MOFETIL [Suspect]
     Indication: OFF LABEL USE
  3. ADALIMUMAB [Suspect]
     Indication: RHEUMATOID ARTHRITIS
     Route: 065
     Dates: start: 201205
  4. ADALIMUMAB [Suspect]
     Indication: PSORIASIS
  5. ADALIMUMAB [Suspect]
     Indication: COLITIS ULCERATIVE
  6. ADALIMUMAB [Suspect]
     Indication: SJOGREN^S SYNDROME
  7. ADALIMUMAB [Suspect]
     Indication: OFF LABEL USE

REACTIONS (6)
  - Deafness [Not Recovered/Not Resolved]
  - Cataract [Not Recovered/Not Resolved]
  - Psoriasis [Unknown]
  - Gout [Unknown]
  - Impaired healing [Unknown]
  - Dry eye [Unknown]
